FAERS Safety Report 10830499 (Version 2)
Quarter: 2015Q1

REPORT INFORMATION
  Report Type: Spontaneous
  Country: US (occurrence: US)
  Receive Date: 20150219
  Receipt Date: 20150303
  Transmission Date: 20150721
  Serious: No
  Sender: FDA-Public Use
  Company Number: US-PFIZER INC-2015062929

PATIENT
  Age: 42 Year
  Sex: Male
  Weight: 73.92 kg

DRUGS (1)
  1. VIAGRA [Suspect]
     Active Substance: SILDENAFIL CITRATE
     Indication: ERECTILE DYSFUNCTION
     Dosage: ONE HALF OF A 100MG TABLET, UNK
     Route: 048
     Dates: start: 2010

REACTIONS (3)
  - Product quality issue [Unknown]
  - Drug dispensing error [Unknown]
  - Drug ineffective [Unknown]
